FAERS Safety Report 18127782 (Version 2)
Quarter: 2021Q1

REPORT INFORMATION
  Report Type: Spontaneous
  Country: US (occurrence: US)
  Receive Date: 20200810
  Receipt Date: 20210325
  Transmission Date: 20210419
  Serious: Yes (Other)
  Sender: FDA-Public Use
  Company Number: US-GLAXOSMITHKLINE-US2020154326

PATIENT
  Sex: Female

DRUGS (8)
  1. ZANTAC [Suspect]
     Active Substance: RANITIDINE HYDROCHLORIDE
     Indication: GASTRIC HAEMORRHAGE
     Dosage: 150 MG, QD
     Route: 065
     Dates: start: 198301, end: 202001
  2. ZANTAC [Suspect]
     Active Substance: RANITIDINE HYDROCHLORIDE
     Indication: GASTRIC HAEMORRHAGE
     Dosage: 150 MG, QD
     Route: 065
     Dates: start: 198301, end: 202001
  3. RANITIDINE CAPSULE [Suspect]
     Active Substance: RANITIDINE
     Indication: GASTRIC HAEMORRHAGE
     Dosage: 150 MG, QD
     Route: 065
     Dates: start: 198301, end: 202001
  4. RANITIDINE HCI [Suspect]
     Active Substance: RANITIDINE HYDROCHLORIDE
     Route: 065
  5. ZANTAC [Suspect]
     Active Substance: RANITIDINE HYDROCHLORIDE
     Route: 065
  6. RANITIDINE. [Suspect]
     Active Substance: RANITIDINE
     Indication: GASTRIC HAEMORRHAGE
     Dosage: 150 MG, QD
     Route: 065
     Dates: start: 199701, end: 202001
  7. ZANTAC [Suspect]
     Active Substance: RANITIDINE HYDROCHLORIDE
     Indication: GASTRIC HAEMORRHAGE
     Dosage: 150 MG, QD
     Route: 065
     Dates: start: 198301, end: 202001
  8. RANITIDINE. [Suspect]
     Active Substance: RANITIDINE
     Indication: GASTRIC HAEMORRHAGE
     Dosage: 150 MG, QD
     Route: 065
     Dates: start: 199701, end: 202001

REACTIONS (1)
  - Bladder cancer [Unknown]
